FAERS Safety Report 20150358 (Version 1)
Quarter: 2021Q4

REPORT INFORMATION
  Report Type: Spontaneous
  Country: US (occurrence: US)
  Receive Date: 20211206
  Receipt Date: 20211206
  Transmission Date: 20220303
  Serious: No
  Sender: FDA-Public Use
  Company Number: US-GLAXOSMITHKLINE-USCH2021086382

PATIENT
  Age: 78 Year
  Sex: Male

DRUGS (1)
  1. VOLTAREN ARTHRITIS PAIN [Suspect]
     Active Substance: DICLOFENAC SODIUM
     Indication: Arthritis
     Dosage: UNK

REACTIONS (5)
  - Rash [Unknown]
  - Scratch [Unknown]
  - Skin fissures [Unknown]
  - Pruritus [Unknown]
  - Skin haemorrhage [Unknown]
